FAERS Safety Report 9463100 (Version 1)
Quarter: 2013Q3

REPORT INFORMATION
  Report Type: Spontaneous
  Country: US (occurrence: US)
  Receive Date: 20130816
  Receipt Date: 20130816
  Transmission Date: 20140515
  Serious: Yes (Hospitalization)
  Sender: FDA-Public Use
  Company Number: US-B.I. PHARMACEUTICALS,INC./RIDGEFIELD-2013-BI-24632BP

PATIENT
  Age: 78 Year
  Sex: Male

DRUGS (23)
  1. PRADAXA [Suspect]
     Indication: CARDIAC DISORDER
     Dosage: 150 MG
     Route: 048
     Dates: start: 201209
  2. TOPROL XL [Concomitant]
  3. CELEBREX [Concomitant]
  4. COLCHICINE [Concomitant]
  5. HUMALOG [Concomitant]
  6. ZETIA [Concomitant]
  7. ZYLOPRIM [Concomitant]
  8. AVANDIA [Concomitant]
  9. METANX [Concomitant]
  10. RESTASIS [Concomitant]
  11. NEXIUM [Concomitant]
  12. RANITIDINE [Concomitant]
  13. ZAROXOLYN [Concomitant]
  14. DEMADEX [Concomitant]
  15. LISINOPRIL [Concomitant]
  16. LIPITOR [Concomitant]
  17. XANAX [Concomitant]
  18. ALTACE [Concomitant]
  19. HUMULIN [Concomitant]
  20. ADVAIR [Concomitant]
  21. CALCITRIOL [Concomitant]
  22. NEURONTIN [Concomitant]
  23. ASPIRIN [Concomitant]

REACTIONS (1)
  - Asthenia [Not Recovered/Not Resolved]
